FAERS Safety Report 5155930-2 (Version None)
Quarter: 2006Q4

REPORT INFORMATION
  Report Type: 
  Country: None (occurrence: None)
  Receive Date: 20061122
  Receipt Date: 20050614
  Transmission Date: 20070319
  Serious: Yes (Hospitalization)
  Sender: FDA-Public Use
  Company Number: FR-ABBOTT-05P-056-0303962-00

PATIENT
  Sex: Female
  Weight: 82 kg

DRUGS (7)
  1. HUMIRA [Suspect]
     Indication: RHEUMATOID ARTHRITIS
     Route: 058
     Dates: start: 20040806, end: 20041116
  2. PREDNISONE TAB [Concomitant]
     Indication: RHEUMATOID ARTHRITIS
  3. ACETAMINOPHEN [Concomitant]
     Indication: PAIN
     Dates: start: 20030101
  4. ACETAMINOPHEN [Concomitant]
     Indication: RHEUMATOID ARTHRITIS
  5. PANTOPRAZOLE SODIUM [Concomitant]
     Indication: GASTROOESOPHAGEAL REFLUX DISEASE
     Dates: start: 20030101
  6. LEKOVIT CA [Concomitant]
     Indication: OSTEOPOROSIS PROPHYLAXIS
  7. HUMIRA [Concomitant]
     Indication: RHEUMATOID ARTHRITIS
     Dates: start: 20031001

REACTIONS (1)
  - SYSTEMIC LUPUS ERYTHEMATOSUS [None]
